FAERS Safety Report 4968030-9 (Version None)
Quarter: 2006Q2

REPORT INFORMATION
  Report Type: 
  Country: None (occurrence: None)
  Receive Date: 20060405
  Receipt Date: 20060327
  Transmission Date: 20061013
  Serious: Yes (Other)
  Sender: FDA-Public Use
  Company Number: 28939

PATIENT
  Age: 77 Year
  Sex: Female

DRUGS (4)
  1. METRONIDAZOLE [Suspect]
  2. CLARITHROMYCIN [Suspect]
     Indication: PNEUMONIA
  3. CEFTRIAXONE [Suspect]
  4. VANCOMYCIN [Concomitant]

REACTIONS (3)
  - CLOSTRIDIUM COLITIS [None]
  - DISEASE RECURRENCE [None]
  - PNEUMONIA [None]
